FAERS Safety Report 9461704 (Version 1)
Quarter: 2013Q3

REPORT INFORMATION
  Report Type: Spontaneous
  Country: DE (occurrence: None)
  Receive Date: 20130813
  Receipt Date: 20130813
  Transmission Date: 20140515
  Serious: No
  Sender: FDA-Public Use
  Company Number: DEX-DEXPHARM-20130481

PATIENT
  Sex: Female

DRUGS (1)
  1. PERIOCHIP [Suspect]
     Dosage: PERIODONTAL INSERT
     Dates: start: 20130703

REACTIONS (6)
  - Implant site necrosis [None]
  - Glossodynia [None]
  - Throat irritation [None]
  - Headache [None]
  - Malaise [None]
  - Application site reaction [None]
